FAERS Safety Report 10146485 (Version 1)
Quarter: 2014Q2

REPORT INFORMATION
  Report Type: Spontaneous
  Country: US (occurrence: None)
  Receive Date: 20140430
  Receipt Date: 20140430
  Transmission Date: 20141212
  Serious: Yes (Life-Threatening, Hospitalization, Other)
  Sender: FDA-Public Use
  Company Number: None

PATIENT
  Age: 46 Year
  Sex: Female
  Weight: 81.65 kg

DRUGS (1)
  1. LO LOESTRIN FE [Suspect]
     Indication: VAGINAL HAEMORRHAGE
     Dosage: 0420G089
     Route: 048
     Dates: start: 20140325, end: 20140412

REACTIONS (3)
  - Haemorrhage [None]
  - Pulmonary embolism [None]
  - Chest pain [None]
